FAERS Safety Report 9593348 (Version 2)
Quarter: 2013Q4

REPORT INFORMATION
  Report Type: Spontaneous
  Country: AE (occurrence: AE)
  Receive Date: 20131004
  Receipt Date: 20131114
  Transmission Date: 20140711
  Serious: Yes (Other)
  Sender: FDA-Public Use
  Company Number: AE-VERTEX PHARMACEUTICALS INC-2013-010160

PATIENT
  Age: 52 Year
  Sex: Male
  Weight: 106 kg

DRUGS (6)
  1. INCIVO [Suspect]
     Indication: HEPATITIS C
     Dosage: 375 MG, UNK
     Route: 048
  2. INCIVO [Suspect]
     Route: 048
  3. PEGASYS [Suspect]
     Indication: HEPATITIS C
     Dosage: 180 ?G, UNK
     Route: 065
  4. PEGASYS [Suspect]
     Dosage: DOSAGE FORM: UNSPECIFIED
  5. RIBAVIRIN [Suspect]
     Indication: HEPATITIS C
     Dosage: 1200 MG, UNK
     Route: 065
  6. RIBAVIRIN [Suspect]
     Dosage: DOSAGE FORM: UNSPECIFIED

REACTIONS (2)
  - Rash [Unknown]
  - Eosinophil count increased [Unknown]
